FAERS Safety Report 23241081 (Version 1)
Quarter: 2023Q4

REPORT INFORMATION
  Report Type: Report from Study
  Country: US (occurrence: US)
  Receive Date: 20231129
  Receipt Date: 20231129
  Transmission Date: 20240110
  Serious: Yes (Other)
  Sender: FDA-Public Use
  Company Number: US-MYLANLABS-2023M1108020

PATIENT
  Sex: Male

DRUGS (2)
  1. GLATIRAMER [Suspect]
     Active Substance: GLATIRAMER
     Indication: Multiple sclerosis
     Dosage: UNK
     Route: 058
  2. GLATIRAMER [Suspect]
     Active Substance: GLATIRAMER
     Dosage: 40 MILLIGRAM, 3XW
     Route: 065

REACTIONS (2)
  - Tuberculosis [Unknown]
  - Nasopharyngitis [Unknown]
